FAERS Safety Report 19425496 (Version 4)
Quarter: 2021Q4

REPORT INFORMATION
  Report Type: Report from Study
  Country: US (occurrence: US)
  Receive Date: 20210617
  Receipt Date: 20211005
  Transmission Date: 20220303
  Serious: Yes (Death, Other)
  Sender: FDA-Public Use
  Company Number: US-TAIHO ONCOLOGY INC-EU-2021-01893

PATIENT
  Age: 64 Year
  Sex: Female
  Weight: 84.8 kg

DRUGS (45)
  1. LONSURF [Suspect]
     Active Substance: TIPIRACIL HYDROCHLORIDE\TRIFLURIDINE
     Indication: Product used for unknown indication
     Dosage: CYCLE 1
     Route: 048
     Dates: start: 20210329
  2. LONSURF [Suspect]
     Active Substance: TIPIRACIL HYDROCHLORIDE\TRIFLURIDINE
     Route: 048
     Dates: end: 20210514
  3. AVASTIN [Suspect]
     Active Substance: BEVACIZUMAB
     Indication: Product used for unknown indication
     Dosage: CYCLE 1
     Dates: start: 20210310
  4. AVASTIN [Suspect]
     Active Substance: BEVACIZUMAB
     Dosage: CYCLE 2
     Dates: start: 20210407, end: 20210421
  5. METHYLNAL TREXONE BROMIDE [Concomitant]
     Route: 058
  6. SYNTHROID [Concomitant]
     Active Substance: LEVOTHYROXINE SODIUM
     Route: 048
  7. VITAMIN B12 [Concomitant]
     Active Substance: CYANOCOBALAMIN
     Dosage: 1000 MCG/ML
     Route: 030
     Dates: start: 20210414
  8. VITAMIN B12 [Concomitant]
     Active Substance: CYANOCOBALAMIN
     Dosage: 1000 MCG/ML SOLUTION
  9. NORCO [Concomitant]
     Active Substance: ACETAMINOPHEN\HYDROCODONE BITARTRATE
     Indication: Pain
     Dosage: 5-325MG TABLETS 2 BY MOUTH EVERY 4-6 HOURS
  10. FENTANYL [Concomitant]
     Active Substance: FENTANYL
     Dosage: 37.5 G 1PATCH
  11. FENTANYL [Concomitant]
     Active Substance: FENTANYL
     Dosage: 75 MCG/HR 1 PATCH
     Route: 062
  12. COLACE/SENNA [Concomitant]
     Dosage: 8.6-50.MG TABLET
     Route: 048
     Dates: start: 20200501
  13. ZOFRAN [Concomitant]
     Active Substance: ONDANSETRON HYDROCHLORIDE
     Dosage: AS NEEDED
     Route: 048
  14. ZOFRAN [Concomitant]
     Active Substance: ONDANSETRON HYDROCHLORIDE
     Dosage: PRN
     Route: 042
  15. ZOFRAN [Concomitant]
     Active Substance: ONDANSETRON HYDROCHLORIDE
     Dosage: 2 MG/ML SOLUTION
     Route: 042
     Dates: start: 20210625
  16. ZOFRAN [Concomitant]
     Active Substance: ONDANSETRON HYDROCHLORIDE
     Route: 048
     Dates: start: 20210525
  17. COMPAZINE [Concomitant]
     Active Substance: PROCHLORPERAZINE MALEATE
     Dosage: AS NEEDED
     Route: 048
     Dates: start: 20210406
  18. IMODIUM [Concomitant]
     Active Substance: LOPERAMIDE HYDROCHLORIDE
  19. GAS-X [Concomitant]
     Active Substance: DIMETHICONE
     Indication: Flatulence
     Dosage: AS NEEDED
     Route: 048
  20. VITAMIN D3 [Concomitant]
     Active Substance: CHOLECALCIFEROL
     Dosage: 125 MCG
     Route: 048
     Dates: start: 20210310
  21. AMLODIPINE [Concomitant]
     Active Substance: AMLODIPINE BESYLATE
     Route: 048
     Dates: start: 20210310
  22. DRONABINOL [Concomitant]
     Active Substance: DRONABINOL
     Route: 048
  23. ENOXAPARIN SODIUM [Concomitant]
     Active Substance: ENOXAPARIN SODIUM
     Route: 058
  24. POLYETHYLENE GLYCO 3350 [Concomitant]
     Route: 048
  25. DOCUSATE SODIUM [Concomitant]
     Active Substance: DOCUSATE SODIUM
     Route: 048
  26. SENNA [Concomitant]
     Active Substance: SENNA LEAF\SENNOSIDES\SENNOSIDES A AND B
     Dosage: 1 TAB
     Route: 048
  27. PANTOPRAZOLE [Concomitant]
     Active Substance: PANTOPRAZOLE
     Route: 048
  28. DEXTROSE [Concomitant]
     Active Substance: DEXTROSE
     Dosage: 10%/WATER 250 ML ASDIR
     Route: 042
  29. LORAZEPAM [Concomitant]
     Active Substance: LORAZEPAM
     Dosage: PRN
     Route: 042
  30. HYDROMORPHONE HCL [Interacting]
     Active Substance: HYDROMORPHONE HYDROCHLORIDE
     Dosage: PRN
     Route: 042
  31. ATIVAN [Concomitant]
     Active Substance: LORAZEPAM
     Indication: Anxiety
     Dosage: TAKING 1/2 - 1 TABLET?PRN
     Route: 048
     Dates: start: 20210525
  32. ATIVAN [Concomitant]
     Active Substance: LORAZEPAM
     Dosage: AS NEEDED
     Route: 048
  33. PROZAC [Concomitant]
     Active Substance: FLUOXETINE HYDROCHLORIDE
     Route: 048
  34. PROZAC [Concomitant]
     Active Substance: FLUOXETINE HYDROCHLORIDE
     Route: 048
  35. SANCUSO [Concomitant]
     Active Substance: GRANISETRON
     Dosage: 3.1 MG/24 HOUR PATCH
     Route: 062
     Dates: start: 20210406
  36. PROTONIX [Concomitant]
     Active Substance: PANTOPRAZOLE SODIUM
     Dosage: DELAYED RELEASE (ENTERIC COATED)
     Dates: start: 20210406
  37. DAILYVITE VITAMIN D3 MAX [Concomitant]
     Dosage: 1,250 MCG (50,000 UNIT) TABLET]
     Dates: start: 20201014
  38. HYDROCODONE-ACETAMENOPHEN [Concomitant]
     Dosage: 1-2 TAB
     Route: 048
  39. VITAMIN D [Concomitant]
     Active Substance: VITAMIN D NOS
     Route: 048
  40. PROCHLORPERAZINE [Concomitant]
     Active Substance: PROCHLORPERAZINE
     Indication: Nausea
     Dosage: PRN
     Route: 048
  41. PROCHLORPERAZINE [Concomitant]
     Active Substance: PROCHLORPERAZINE
     Indication: Vomiting
  42. ROXICODONE [Concomitant]
     Active Substance: OXYCODONE HYDROCHLORIDE
     Route: 048
  43. ADDERALL XR [Concomitant]
     Active Substance: AMPHETAMINE ASPARTATE\AMPHETAMINE SULFATE\DEXTROAMPHETAMINE SACCHARATE\DEXTROAMPHETAMINE SULFATE
  44. PERCOCET [Concomitant]
     Active Substance: ACETAMINOPHEN\OXYCODONE HYDROCHLORIDE
     Dosage: 10-325 MG
     Route: 048
  45. CALCITRIOL [Concomitant]
     Active Substance: CALCITRIOL
     Route: 048

REACTIONS (9)
  - Disease progression [Fatal]
  - Hepatic failure [Unknown]
  - Sinus bradycardia [Unknown]
  - Sinus arrhythmia [Unknown]
  - Insomnia [Unknown]
  - Nausea [Not Recovered/Not Resolved]
  - Decreased appetite [Unknown]
  - Fatigue [Unknown]
  - Malaise [Unknown]

NARRATIVE: CASE EVENT DATE: 20210101
